FAERS Safety Report 8401269-9 (Version None)
Quarter: 2012Q2

REPORT INFORMATION
  Report Type: 
  Country: None (occurrence: None)
  Receive Date: 20120530
  Receipt Date: 20120530
  Transmission Date: 20120825
  Serious: Yes (Disabling, Other)
  Sender: FDA-Public Use
  Company Number: None

PATIENT
  Age: 66 Year
  Sex: Female
  Weight: 90.7194 kg

DRUGS (2)
  1. LEVAQUIN [Suspect]
     Indication: EAR INFECTION
     Dosage: 500 MG 2 X DAILY
     Dates: start: 20090101, end: 20110101
  2. LEVAQUIN [Suspect]
     Indication: INFECTION
     Dosage: 500 MG 2 X DAILY
     Dates: start: 20090101, end: 20110101

REACTIONS (6)
  - TENDON DISORDER [None]
  - ARTHRALGIA [None]
  - PAIN [None]
  - CHEST PAIN [None]
  - DRUG HYPERSENSITIVITY [None]
  - PAIN IN EXTREMITY [None]
